FAERS Safety Report 24644605 (Version 3)
Quarter: 2025Q3

REPORT INFORMATION
  Report Type: Spontaneous
  Country: CA (occurrence: CA)
  Receive Date: 20241121
  Receipt Date: 20250812
  Transmission Date: 20251021
  Serious: Yes (Other)
  Sender: NOVO NORDISK
  Company Number: None

PATIENT
  Age: 8 Year
  Sex: Male

DRUGS (6)
  1. NORDITROPIN [Suspect]
     Active Substance: SOMATROPIN
     Indication: Small for dates baby
     Route: 058
  2. NORDITROPIN [Suspect]
     Active Substance: SOMATROPIN
     Route: 058
  3. NORDITROPIN [Suspect]
     Active Substance: SOMATROPIN
     Route: 058
  4. NORDITROPIN [Suspect]
     Active Substance: SOMATROPIN
     Route: 058
  5. VITAMIN D NOS [Concomitant]
     Active Substance: CHOLECALCIFEROL\ERGOCALCIFEROL
     Dosage: 1200 IU, QD
  6. VITAMIN D NOS [Concomitant]
     Active Substance: CHOLECALCIFEROL\ERGOCALCIFEROL
     Indication: Product used for unknown indication
     Dosage: 1000 IU, QD

REACTIONS (8)
  - Dry skin [Unknown]
  - Ichthyosis [Unknown]
  - Alanine aminotransferase increased [Unknown]
  - Pain in extremity [Unknown]
  - Snoring [Unknown]
  - pH urine increased [Unknown]
  - Blood alkaline phosphatase increased [Unknown]
  - Product dose omission issue [Unknown]
